FAERS Safety Report 4918859-8 (Version None)
Quarter: 2006Q1

REPORT INFORMATION
  Report Type: 
  Country: None (occurrence: None)
  Receive Date: 20060222
  Receipt Date: 20051004
  Transmission Date: 20060701
  Serious: Yes (Hospitalization)
  Sender: FDA-Public Use
  Company Number: US-MERCK-0510USA03986

PATIENT
  Age: 54 Year
  Sex: Male
  Weight: 177 kg

DRUGS (3)
  1. VIOXX [Suspect]
     Indication: ARTHRITIS
     Route: 048
     Dates: start: 20001023, end: 20041002
  2. AMARYL [Concomitant]
     Route: 065
     Dates: start: 19991101
  3. AVANDIA [Concomitant]
     Route: 065
     Dates: start: 20001201

REACTIONS (19)
  - ABDOMINAL INFECTION [None]
  - ANXIETY [None]
  - BACTERIAL INFECTION [None]
  - BLOOD CHOLESTEROL INCREASED [None]
  - DEEP VEIN THROMBOSIS [None]
  - DEPRESSION [None]
  - DYSPNOEA [None]
  - EYE IRRITATION [None]
  - FUNGAL INFECTION [None]
  - GASTROOESOPHAGEAL REFLUX DISEASE [None]
  - GINGIVITIS [None]
  - INCONTINENCE [None]
  - INFECTION [None]
  - JOINT INJURY [None]
  - LEUKAEMIA [None]
  - OEDEMA [None]
  - ROTATOR CUFF SYNDROME [None]
  - VASODILATATION [None]
  - VEIN DISORDER [None]
